FAERS Safety Report 8316992-4 (Version None)
Quarter: 2012Q2

REPORT INFORMATION
  Report Type: 
  Country: None (occurrence: None)
  Receive Date: 20120425
  Receipt Date: 20120413
  Transmission Date: 20120825
  Serious: Yes (Other)
  Sender: FDA-Public Use
  Company Number: US-008212

PATIENT
  Age: 12 Year
  Sex: Male

DRUGS (1)
  1. TEV-TROPIN [Suspect]
     Indication: GROWTH HORMONE DEFICIENCY
     Dosage: SUBCUTANEOUS
     Route: 058
     Dates: start: 20081116, end: 20120412

REACTIONS (1)
  - MEDULLOBLASTOMA RECURRENT [None]
